FAERS Safety Report 6570895-4 (Version None)
Quarter: 2010Q1

REPORT INFORMATION
  Report Type: 
  Country: None (occurrence: None)
  Receive Date: 20100128
  Receipt Date: 20100128
  Transmission Date: 20100710
  Serious: Yes (Hospitalization)
  Sender: FDA-Public Use
  Company Number: None

PATIENT
  Sex: Male
  Weight: 69 kg

DRUGS (2)
  1. VIDAZA [Suspect]
     Indication: ACUTE MYELOID LEUKAEMIA
     Dosage: 750MG/M2 QD S/C
     Route: 058
  2. LENALIDOMIDE N-21880 [Suspect]
     Dosage: 5 MG QD PO
     Route: 048

REACTIONS (1)
  - BACK PAIN [None]
